FAERS Safety Report 21462030 (Version 1)
Quarter: 2022Q4

REPORT INFORMATION
  Report Type: Report from Study
  Country: US (occurrence: US)
  Receive Date: 20221015
  Receipt Date: 20221015
  Transmission Date: 20230113
  Serious: No
  Sender: FDA-Public Use
  Company Number: US-ABBVIE-22K-163-4519987-00

PATIENT
  Sex: Female

DRUGS (1)
  1. HUMIRA [Suspect]
     Active Substance: ADALIMUMAB
     Indication: Rheumatoid arthritis
     Dosage: CITRATE FREE
     Route: 058

REACTIONS (11)
  - Fatigue [Unknown]
  - Attention deficit hyperactivity disorder [Unknown]
  - Inflammatory marker increased [Unknown]
  - Thyroid function test abnormal [Unknown]
  - Type 2 diabetes mellitus [Unknown]
  - Oral pain [Unknown]
  - Mouth swelling [Unknown]
  - COVID-19 [Unknown]
  - Swelling face [Unknown]
  - Swollen tongue [Unknown]
  - Aphthous ulcer [Unknown]

NARRATIVE: CASE EVENT DATE: 20200101
